FAERS Safety Report 13759330 (Version 1)
Quarter: 2017Q3

REPORT INFORMATION
  Report Type: Spontaneous
  Country: US (occurrence: US)
  Receive Date: 20170717
  Receipt Date: 20170717
  Transmission Date: 20171127
  Serious: No
  Sender: FDA-Public Use
  Company Number: US-PFIZER INC-2017303414

PATIENT
  Sex: Female

DRUGS (1)
  1. EXEMESTANE. [Suspect]
     Active Substance: EXEMESTANE
     Indication: BREAST CANCER STAGE IV
     Dosage: 25 MG, DAILY (FOR 30 DAYS)
     Route: 048
     Dates: start: 20120522

REACTIONS (1)
  - Neoplasm progression [Unknown]
